FAERS Safety Report 9369091 (Version 1)
Quarter: 2013Q2

REPORT INFORMATION
  Report Type: Spontaneous
  Country: ES (occurrence: None)
  Receive Date: 20130621
  Receipt Date: 20130621
  Transmission Date: 20140414
  Serious: Yes (Hospitalization, Disabling)
  Sender: FDA-Public Use
  Company Number: 2013-001910

PATIENT
  Age: 68 Year
  Sex: Female

DRUGS (1)
  1. ACTONEL (RISEDRONATE SODIUM) TABLET, 35MG [Suspect]
     Indication: OSTEOPOROSIS
     Route: 048
     Dates: start: 2006, end: 20130519

REACTIONS (1)
  - Atypical femur fracture [None]
